FAERS Safety Report 4538887-4 (Version None)
Quarter: 2004Q4

REPORT INFORMATION
  Report Type: 
  Country: None (occurrence: None)
  Receive Date: 20041227
  Receipt Date: 20040528
  Transmission Date: 20050328
  Serious: Yes (Hospitalization)
  Sender: FDA-Public Use
  Company Number: JP-ABBOTT-04P-087-0262377-00

PATIENT
  Age: 67 Year
  Sex: Female

DRUGS (3)
  1. LIPANTIL [Suspect]
     Indication: HYPERLIPIDAEMIA
     Route: 048
     Dates: start: 20040313, end: 20040412
  2. PITAVASTATIN [Concomitant]
     Indication: HYPERLIPIDAEMIA
     Dates: end: 20040205
  3. CHOLEBRINE [Concomitant]
     Indication: HYPERLIPIDAEMIA
     Dates: start: 20040205, end: 20040313

REACTIONS (3)
  - CHOLELITHIASIS [None]
  - JAUNDICE CHOLESTATIC [None]
  - MALAISE [None]
